FAERS Safety Report 5518310-3 (Version None)
Quarter: 2007Q4

REPORT INFORMATION
  Report Type: 
  Country: None (occurrence: None)
  Receive Date: 20071114
  Receipt Date: 20071114
  Transmission Date: 20080405
  Serious: Yes (Hospitalization, Other)
  Sender: FDA-Public Use
  Company Number: None

PATIENT
  Age: 47 Year
  Sex: Male
  Weight: 74.8435 kg

DRUGS (2)
  1. BEXTRA [Suspect]
     Indication: ARTHRALGIA
     Dates: start: 20030101, end: 20041227
  2. CELEBREX [Suspect]
     Indication: ARTHRALGIA
     Dates: start: 20030225, end: 20041027

REACTIONS (7)
  - BLISTER [None]
  - COLONIC POLYP [None]
  - GASTROINTESTINAL DISORDER [None]
  - GASTROOESOPHAGEAL REFLUX DISEASE [None]
  - OESOPHAGEAL ULCER [None]
  - PRECANCEROUS CELLS PRESENT [None]
  - SKIN ULCER [None]
